FAERS Safety Report 17210697 (Version 13)
Quarter: 2021Q1

REPORT INFORMATION
  Report Type: Report from Study
  Country: None (occurrence: US)
  Receive Date: 20191227
  Receipt Date: 20210128
  Transmission Date: 20210419
  Serious: Yes (Hospitalization, Other)
  Sender: FDA-Public Use
  Company Number: US-ABBVIE-18K-163-3103704-00

PATIENT
  Age: 57 Year
  Sex: Male

DRUGS (27)
  1. IMBRUVICA [Suspect]
     Active Substance: IBRUTINIB
     Indication: CHRONIC LYMPHOCYTIC LEUKAEMIA
     Route: 048
     Dates: start: 20180410, end: 201808
  2. MOTRIN [Concomitant]
     Active Substance: IBUPROFEN
     Indication: PRODUCT USED FOR UNKNOWN INDICATION
  3. LORATADINE. [Concomitant]
     Active Substance: LORATADINE
     Indication: PRODUCT USED FOR UNKNOWN INDICATION
  4. FLOVENT [Concomitant]
     Active Substance: FLUTICASONE PROPIONATE
     Indication: PRODUCT USED FOR UNKNOWN INDICATION
  5. IMBRUVICA [Suspect]
     Active Substance: IBRUTINIB
     Route: 048
  6. IMBRUVICA [Concomitant]
     Active Substance: IBRUTINIB
     Dosage: 420 MG, QD
     Route: 048
     Dates: start: 20181029, end: 20190129
  7. LYRICA [Concomitant]
     Active Substance: PREGABALIN
     Indication: PRODUCT USED FOR UNKNOWN INDICATION
  8. IMBRUVICA [Suspect]
     Active Substance: IBRUTINIB
     Route: 048
  9. IMBRUVICA [Concomitant]
     Active Substance: IBRUTINIB
     Dosage: 420 MG, QD
     Route: 048
     Dates: start: 20140303, end: 20180415
  10. PRILOSEC [Concomitant]
     Active Substance: OMEPRAZOLE MAGNESIUM
     Indication: PRODUCT USED FOR UNKNOWN INDICATION
  11. IMBRUVICA [Suspect]
     Active Substance: IBRUTINIB
     Indication: CHRONIC LYMPHOCYTIC LEUKAEMIA
     Dosage: 420 MG, QD
     Route: 048
     Dates: start: 20180416, end: 20180510
  12. IMBRUVICA [Suspect]
     Active Substance: IBRUTINIB
     Route: 048
     Dates: start: 20181029
  13. IMBRUVICA [Suspect]
     Active Substance: IBRUTINIB
     Route: 048
  14. IMBRUVICA [Concomitant]
     Active Substance: IBRUTINIB
     Dosage: 420 MG, QD
     Route: 048
     Dates: start: 20140215, end: 20180501
  15. GABAPENTIN. [Concomitant]
     Active Substance: GABAPENTIN
     Indication: PRODUCT USED FOR UNKNOWN INDICATION
  16. LIDODERM [Concomitant]
     Active Substance: LIDOCAINE
     Indication: PRODUCT USED FOR UNKNOWN INDICATION
  17. IMBRUVICA [Suspect]
     Active Substance: IBRUTINIB
     Route: 048
     Dates: start: 20181029
  18. IMBRUVICA [Suspect]
     Active Substance: IBRUTINIB
     Route: 048
     Dates: start: 20190126
  19. IMBRUVICA [Suspect]
     Active Substance: IBRUTINIB
     Route: 048
     Dates: start: 20190201
  20. IMBRUVICA [Suspect]
     Active Substance: IBRUTINIB
     Route: 048
     Dates: start: 20181029
  21. IMMUNOGLOBULIN (IMMUNOGLOBULIN HUMAN NORMAL) [Suspect]
     Active Substance: HUMAN IMMUNOGLOBULIN G
     Indication: PRODUCT USED FOR UNKNOWN INDICATION
     Route: 042
  22. IMBRUVICA [Concomitant]
     Active Substance: IBRUTINIB
     Dosage: 420 MG, QD
     Route: 048
     Dates: start: 20181101, end: 20190126
  23. IMBRUVICA [Concomitant]
     Active Substance: IBRUTINIB
     Dosage: 420 MG, QD
     Route: 048
     Dates: start: 20181029, end: 201902
  24. IMBRUVICA [Suspect]
     Active Substance: IBRUTINIB
     Route: 048
  25. IMBRUVICA [Concomitant]
     Active Substance: IBRUTINIB
     Indication: CHRONIC LYMPHOCYTIC LEUKAEMIA
     Dosage: 420 MG, QD
     Route: 048
     Dates: start: 20160402, end: 20180409
  26. PROVENTIL [Concomitant]
     Active Substance: ALBUTEROL
     Indication: PRODUCT USED FOR UNKNOWN INDICATION
  27. IMBRUVICA [Suspect]
     Active Substance: IBRUTINIB
     Route: 048
     Dates: start: 20190129

REACTIONS (38)
  - Pneumonia mycoplasmal [Recovered/Resolved]
  - Wound [Not Recovered/Not Resolved]
  - Abdominal distension [Unknown]
  - Asthma [Unknown]
  - Blood creatinine increased [Unknown]
  - Nasopharyngitis [Recovered/Resolved]
  - Pain in extremity [Recovering/Resolving]
  - Lymphadenopathy [Not Recovered/Not Resolved]
  - Therapeutic product effect decreased [Unknown]
  - Neuralgia [Not Recovered/Not Resolved]
  - Platelet count decreased [Unknown]
  - Fatigue [Not Recovered/Not Resolved]
  - Onychoclasis [Not Recovered/Not Resolved]
  - Malaise [Recovered/Resolved]
  - Muscle tone disorder [Unknown]
  - Nail disorder [Unknown]
  - Rash [Recovered/Resolved]
  - Herpes zoster [Recovered/Resolved]
  - Product label issue [Unknown]
  - Memory impairment [Unknown]
  - Hypersomnia [Unknown]
  - Post herpetic neuralgia [Not Recovered/Not Resolved]
  - Bronchitis [Recovered/Resolved]
  - Splenectomy [Unknown]
  - Product dose omission issue [Unknown]
  - Immunodeficiency [Unknown]
  - White blood cell count increased [Not Recovered/Not Resolved]
  - White blood cell count decreased [Not Recovered/Not Resolved]
  - Depression [Unknown]
  - Somnolence [Unknown]
  - Nasopharyngitis [Recovered/Resolved]
  - Erythema [Recovering/Resolving]
  - Localised infection [Recovering/Resolving]
  - Neutrophil count decreased [Recovered/Resolved]
  - Disease progression [Recovered/Resolved]
  - Skin lesion [Unknown]
  - Bradycardia [Unknown]
  - Lymphocytosis [Recovering/Resolving]

NARRATIVE: CASE EVENT DATE: 20180510
